FAERS Safety Report 8959636 (Version 1)
Quarter: 2012Q4

REPORT INFORMATION
  Report Type: 
  Country: BR (occurrence: BR)
  Receive Date: 20121211
  Receipt Date: 20121211
  Transmission Date: 20130627
  Serious: Yes (Hospitalization)
  Sender: FDA-Public Use
  Company Number: BR-BAXTER-2012BAX025817

PATIENT
  Age: 21 Year
  Sex: Female
  Weight: 48 kg

DRUGS (13)
  1. GENUXAL [Suspect]
     Indication: CHEMOTHERAPY
     Route: 042
     Dates: start: 20121015, end: 20121015
  2. GENUXAL [Suspect]
     Route: 042
     Dates: start: 20121105, end: 20121105
  3. VINCRISTINE [Concomitant]
     Indication: CHEMOTHERAPY
     Route: 042
     Dates: start: 20121015, end: 20121015
  4. VINCRISTINE [Concomitant]
     Route: 042
     Dates: start: 20121022, end: 20121022
  5. VINCRISTINE [Concomitant]
     Route: 042
     Dates: start: 20121029, end: 20121029
  6. VINCRISTINE [Concomitant]
     Route: 042
     Dates: start: 20121105, end: 20121105
  7. OXYCODONE [Concomitant]
     Indication: DRUG USE FOR UNKNOWN INDICATION
     Route: 048
  8. CELECOXIBE [Concomitant]
     Indication: DRUG USE FOR UNKNOWN INDICATION
     Route: 048
  9. AMITRIPTYLINE [Concomitant]
     Indication: DRUG USE FOR UNKNOWN INDICATION
     Route: 048
  10. OMEPRAZOLE [Concomitant]
     Indication: DRUG USE FOR UNKNOWN INDICATION
     Route: 065
  11. ONDASETRON [Concomitant]
     Indication: PREMEDICATION
     Route: 042
  12. DEXAMETHASONE [Concomitant]
     Indication: PREMEDICATION
     Route: 042
  13. MESNA [Concomitant]
     Indication: PREMEDICATION
     Route: 042

REACTIONS (4)
  - Mucosal inflammation [Recovered/Resolved]
  - Fatigue [Recovered/Resolved]
  - Decreased appetite [Recovered/Resolved]
  - Cancer pain [Recovered/Resolved]
